FAERS Safety Report 7885177-8 (Version None)
Quarter: 2011Q4

REPORT INFORMATION
  Report Type: 
  Country: None (occurrence: None)
  Receive Date: 20111102
  Receipt Date: 20100901
  Transmission Date: 20120403
  Serious: No
  Sender: FDA-Public Use
  Company Number: US-BAYER-201032963NA

PATIENT
  Sex: Female
  Weight: 79.365 kg

DRUGS (7)
  1. SYMBICORT [Concomitant]
  2. LEVOCETIRIZINE DIHYDROCHLORIDE [Concomitant]
  3. SPIRIVA [Concomitant]
  4. ULTRAVIST 300 [Suspect]
     Indication: COMPUTERISED TOMOGRAM
     Dosage: 100 ML, UNK
     Route: 042
     Dates: start: 20100901
  5. PROTONIX [Concomitant]
  6. ATROVENT [Concomitant]
  7. ALBUTEROL [Concomitant]

REACTIONS (1)
  - CHEST DISCOMFORT [None]
